FAERS Safety Report 5602689-8 (Version None)
Quarter: 2008Q1

REPORT INFORMATION
  Report Type: 
  Country: None (occurrence: None)
  Receive Date: 20080125
  Receipt Date: 20080115
  Transmission Date: 20080703
  Serious: Yes (Hospitalization)
  Sender: FDA-Public Use
  Company Number: ZW-GILEAD-2007-0014529

PATIENT
  Age: 39 Year
  Sex: Female
  Weight: 36 kg

DRUGS (3)
  1. EMTRICITABINE/TENOFOVIR DISOPROXIL FUMARATE [Suspect]
     Indication: HIV INFECTION
     Route: 048
     Dates: start: 20071108, end: 20071122
  2. NEVIRAPINE [Concomitant]
     Route: 048
     Dates: start: 20071108, end: 20071122
  3. COTRIMOXAZOLE [Concomitant]

REACTIONS (2)
  - ANAEMIA [None]
  - GASTROENTERITIS [None]
